FAERS Safety Report 25149444 (Version 1)
Quarter: 2025Q2

REPORT INFORMATION
  Report Type: Report from Study
  Country: US (occurrence: US)
  Receive Date: 20250402
  Receipt Date: 20250402
  Transmission Date: 20250717
  Serious: Yes (Other)
  Sender: BAYER
  Company Number: US-BAYER-2025A042045

PATIENT
  Sex: Female

DRUGS (1)
  1. KERENDIA [Suspect]
     Active Substance: FINERENONE
     Indication: Chronic kidney disease

REACTIONS (2)
  - Tachycardia [Not Recovered/Not Resolved]
  - Blood potassium increased [Not Recovered/Not Resolved]
